FAERS Safety Report 10023138 (Version 3)
Quarter: 2014Q4

REPORT INFORMATION
  Report Type: Spontaneous
  Country: DE (occurrence: DE)
  Receive Date: 20140320
  Receipt Date: 20141205
  Transmission Date: 20150528
  Serious: Yes (Hospitalization, Other)
  Sender: FDA-Public Use
  Company Number: DE-ROCHE-1356452

PATIENT
  Age: 41 Year
  Sex: Female
  Weight: 56 kg

DRUGS (11)
  1. PROGRAF [Suspect]
     Active Substance: TACROLIMUS\TACROLIMUS ANHYDROUS
     Indication: PROPHYLAXIS AGAINST TRANSPLANT REJECTION
     Dosage: INDICATION:TRANSPLANT REJECTION PROPHYLAXIS
     Route: 048
     Dates: start: 20110924
  2. COTRIM D.S. [Concomitant]
     Active Substance: SULFAMETHOXAZOLE\TRIMETHOPRIM
     Indication: PROPHYLAXIS
     Route: 065
  3. CYMEVENE [Suspect]
     Active Substance: GANCICLOVIR
     Indication: ANTIVIRAL PROPHYLAXIS
     Dosage: INDICATION:CMV PROPHYLAXIS
     Route: 042
     Dates: start: 201201, end: 201201
  4. PREDNISOLON [Concomitant]
     Active Substance: PREDNISOLONE
     Indication: PROPHYLAXIS
     Dosage: INDICATION:TRANSPLANT REJECTION PROPHYLAXIS
     Route: 048
     Dates: start: 20110924
  5. VALCYTE [Suspect]
     Active Substance: VALGANCICLOVIR HYDROCHLORIDE
     Indication: ANTIVIRAL PROPHYLAXIS
     Dosage: INDICATION:CMV PROPHYLAXIS
     Route: 048
     Dates: start: 20110924, end: 20120112
  6. ESIDRIX [Concomitant]
     Active Substance: HYDROCHLOROTHIAZIDE
     Indication: HYPERTENSION
     Route: 048
  7. DEKRISTOL [Concomitant]
     Active Substance: CHOLECALCIFEROL
  8. CELLCEPT [Suspect]
     Active Substance: MYCOPHENOLATE MOFETIL\MYCOPHENOLATE MOFETIL HYDROCHLORIDE
     Indication: PROPHYLAXIS AGAINST TRANSPLANT REJECTION
     Dosage: INDICATION:TRANSPLANT REJECTION PROPHYLAXIS
     Route: 048
     Dates: start: 20110924, end: 20120115
  9. BASILIXIMAB [Suspect]
     Active Substance: BASILIXIMAB
     Indication: PROPHYLAXIS AGAINST TRANSPLANT REJECTION
     Dosage: INDICATION:TRANSPLANT REJECTION PROPHYLAXIS
     Route: 065
  10. CARMEN (GERMANY) [Concomitant]
     Active Substance: LERCANIDIPINE HYDROCHLORIDE
     Indication: HYPERTENSION
     Route: 065
  11. PANTOZOL [Concomitant]
     Active Substance: PANTOPRAZOLE SODIUM
     Indication: PROPHYLAXIS
     Route: 065

REACTIONS (4)
  - Cytomegalovirus colitis [Unknown]
  - Leukopenia [Unknown]
  - Drug resistance [Recovered/Resolved]
  - Drug ineffective [Unknown]

NARRATIVE: CASE EVENT DATE: 201201
